FAERS Safety Report 14596720 (Version 2)
Quarter: 2018Q1

REPORT INFORMATION
  Report Type: Spontaneous
  Country: DK (occurrence: DK)
  Receive Date: 20180304
  Receipt Date: 20180312
  Transmission Date: 20180509
  Serious: Yes (Hospitalization, Other)
  Sender: FDA-Public Use
  Company Number: DK-AMGEN-DNKSP2018026785

PATIENT
  Age: 65 Year
  Sex: Male

DRUGS (7)
  1. FLUTICASONE. [Concomitant]
     Active Substance: FLUTICASONE
     Indication: RHINITIS ALLERGIC
     Dosage: 2 DF (2 ACTUATIONS DAILY IN BOTH NOSTRILS, STRENGTH: 27.5 MICROGRAM), QD
     Route: 045
     Dates: start: 20160113, end: 20171208
  2. FEXOFENADINE [Concomitant]
     Active Substance: FEXOFENADINE\FEXOFENADINE HYDROCHLORIDE
     Indication: SEASONAL ALLERGY
     Dosage: 180 MG, AS NECESSARY (MAXIMUM 4 TIMES/DAY)
     Route: 048
     Dates: start: 20151230, end: 20171208
  3. SIMVASTATIN. [Concomitant]
     Active Substance: SIMVASTATIN
     Indication: HYPERCHOLESTEROLAEMIA
     Dosage: 20 MG (AT EVENING), QD
     Route: 048
     Dates: start: 20140320
  4. AMLODIPINE [Concomitant]
     Active Substance: AMLODIPINE BESYLATE
     Indication: HYPERTENSION
     Dosage: 5 MG, QD
     Route: 048
     Dates: start: 20140320
  5. PROLIA [Suspect]
     Active Substance: DENOSUMAB
     Indication: OSTEOPOROSIS
     Dosage: 60 MG/ML, Q6MO
     Route: 058
     Dates: start: 20140604, end: 20180207
  6. OPATANOL [Concomitant]
     Active Substance: OLOPATADINE
     Indication: CONJUNCTIVITIS ALLERGIC
     Dosage: 2 DF (1 DROP TWICE A DAY IN BOTH EYES, STRENGTH: 1 MG/ML), BID
     Route: 050
     Dates: start: 20120604, end: 20171208
  7. DYMISTA [Concomitant]
     Active Substance: AZELASTINE HYDROCHLORIDE\FLUTICASONE PROPIONATE
     Indication: RHINITIS ALLERGIC
     Dosage: 2 DF (1 ACTUATION MORNING AND EVENING IN EACH NOSTRILS, STRENGTH: 137 MICROGRAM/DOSE), QD
     Route: 045
     Dates: start: 20170616

REACTIONS (1)
  - Pulmonary embolism [Recovered/Resolved with Sequelae]

NARRATIVE: CASE EVENT DATE: 20180207
